FAERS Safety Report 15665440 (Version 2)
Quarter: 2018Q4

REPORT INFORMATION
  Report Type: Spontaneous
  Country: TR (occurrence: TR)
  Receive Date: 20181128
  Receipt Date: 20181227
  Transmission Date: 20190205
  Serious: Yes (Hospitalization)
  Sender: FDA-Public Use
  Company Number: TR-PFIZER INC-2018485690

PATIENT
  Age: 52 Year
  Sex: Female

DRUGS (1)
  1. SUTENT [Suspect]
     Active Substance: SUNITINIB MALATE
     Indication: METASTATIC RENAL CELL CARCINOMA
     Dosage: 50 MG, CYCLIC 4 WEEKS ON AND THEN 2 WEEK OFF
     Dates: start: 2018, end: 2018

REACTIONS (2)
  - Hyponatraemia [Recovering/Resolving]
  - Hypothyroidism [Unknown]

NARRATIVE: CASE EVENT DATE: 2018
